FAERS Safety Report 6507990-1 (Version None)
Quarter: 2009Q4

REPORT INFORMATION
  Report Type: 
  Country: None (occurrence: None)
  Receive Date: 20091221
  Receipt Date: 20091218
  Transmission Date: 20100525
  Serious: Yes (Death)
  Sender: FDA-Public Use
  Company Number: CHPA2009US23792

PATIENT
  Sex: Female

DRUGS (3)
  1. PRIVATE LABEL (NCH) [Suspect]
     Indication: SMOKING CESSATION THERAPY
     Dosage: 21 MG, UNK
     Route: 062
  2. PRIVATE LABEL (NCH) [Suspect]
     Dosage: 14 MG, UNK
     Route: 062
  3. PRIVATE LABEL (NCH) [Suspect]
     Dosage: 7 MG, UNK
     Route: 062

REACTIONS (4)
  - DRUG INEFFECTIVE [None]
  - HEART RATE INCREASED [None]
  - MALIGNANT MELANOMA [None]
  - TREATMENT NONCOMPLIANCE [None]
